FAERS Safety Report 24253826 (Version 2)
Quarter: 2024Q4

REPORT INFORMATION
  Report Type: Spontaneous
  Country: US (occurrence: US)
  Receive Date: 20240827
  Receipt Date: 20241004
  Transmission Date: 20250115
  Serious: No
  Sender: MYLAN
  Company Number: US-MYLANLABS-2024M1074612

PATIENT
  Sex: Male

DRUGS (1)
  1. WIXELA INHUB [Suspect]
     Active Substance: FLUTICASONE PROPIONATE\SALMETEROL XINAFOATE
     Indication: Respiration abnormal
     Dosage: 100/50 MICROGRAM, PRN
     Route: 055

REACTIONS (3)
  - Off label use [Unknown]
  - Device issue [Unknown]
  - Device delivery system issue [Unknown]
